FAERS Safety Report 10163301 (Version 1)
Quarter: 2014Q2

REPORT INFORMATION
  Report Type: Not Available
  Country: AU (occurrence: AU)
  Receive Date: 20140509
  Receipt Date: 20140509
  Transmission Date: 20141212
  Serious: Yes (Death)
  Sender: FDA-Public Use
  Company Number: AU-NAPPMUNDI-GBR-2014-0018195

PATIENT
  Age: 61 Year
  Sex: Male

DRUGS (19)
  1. OXYCODONE HYDROCHLORIDE [Suspect]
     Indication: PAIN
     Dosage: 4 DF HOURLY AND PRN
     Route: 048
     Dates: start: 20130622, end: 20130624
  2. AMITRIPTYLINE [Concomitant]
  3. ATORVASTATIN [Concomitant]
  4. CELEBREX [Concomitant]
  5. CHOLECALCIFEROL [Concomitant]
  6. DICLOFENAC [Concomitant]
  7. FISH OIL [Concomitant]
  8. HEPARIN [Concomitant]
  9. KETAMINE [Concomitant]
  10. LINCOCIN                           /00033602/ [Concomitant]
  11. MEROPENEM [Concomitant]
  12. METFORMIN [Concomitant]
  13. MIDAZOLAM [Concomitant]
  14. NORADRENALINE                      /00127501/ [Concomitant]
  15. PROPOFOL [Concomitant]
  16. RAMIPRIL [Concomitant]
  17. ROCURONIUM [Concomitant]
  18. VANCOMYCIN [Concomitant]
  19. VECURONIUM BROMIDE [Concomitant]

REACTIONS (3)
  - Confusional state [Recovered/Resolved]
  - Agitation [Recovered/Resolved]
  - Sepsis [Fatal]
